FAERS Safety Report 5922867-8 (Version None)
Quarter: 2008Q4

REPORT INFORMATION
  Report Type: 
  Country: None (occurrence: None)
  Receive Date: 20081017
  Receipt Date: 20081010
  Transmission Date: 20090506
  Serious: Yes (Death)
  Sender: FDA-Public Use
  Company Number: PHHY2008FI22733

PATIENT
  Age: 80 Year
  Sex: Female

DRUGS (6)
  1. EXELON [Suspect]
     Indication: DEMENTIA ALZHEIMER'S TYPE
     Dosage: 4.6 MG/24HR
     Route: 062
     Dates: start: 20080827
  2. BETA BLOCKING AGENTS [Concomitant]
  3. BISOPROLOL FUMARATE [Concomitant]
     Dosage: 1 X 1
  4. THYROXIN [Concomitant]
     Dosage: 1/2 X 1
  5. IDEOS [Concomitant]
     Dosage: 1 TBL X 2
  6. OPTINATE SEPTIMUM [Concomitant]
     Dosage: 1 TBL ONCE A WEEK

REACTIONS (3)
  - DEATH [None]
  - DYSPNOEA [None]
  - MALAISE [None]
